FAERS Safety Report 10565360 (Version 1)
Quarter: 2014Q4

REPORT INFORMATION
  Report Type: Spontaneous
  Country: US (occurrence: None)
  Receive Date: 20141104
  Receipt Date: 20141104
  Transmission Date: 20150529
  Serious: Yes (Hospitalization)
  Sender: FDA-Public Use
  Company Number: None

PATIENT
  Age: 54 Year
  Sex: Male
  Weight: 105 kg

DRUGS (1)
  1. GADODIAMIDE [Suspect]
     Active Substance: GADODIAMIDE
     Indication: DIAGNOSTIC PROCEDURE
     Dates: start: 20141027, end: 20141027

REACTIONS (4)
  - Feeling abnormal [None]
  - Generalised tonic-clonic seizure [None]
  - Dyspnoea [None]
  - Reaction to azo-dyes [None]

NARRATIVE: CASE EVENT DATE: 20141027
